FAERS Safety Report 25493132 (Version 2)
Quarter: 2025Q3

REPORT INFORMATION
  Report Type: Report from Study
  Country: JP (occurrence: JP)
  Receive Date: 20250630
  Receipt Date: 20250717
  Transmission Date: 20251020
  Serious: Yes (Other)
  Sender: ARGENX BVBA
  Company Number: JP-ARGENX-2025-ARGX-JP008225

PATIENT

DRUGS (5)
  1. EFGARTIGIMOD ALFA [Suspect]
     Active Substance: EFGARTIGIMOD ALFA
     Indication: Immune thrombocytopenia
     Route: 042
     Dates: start: 20250107
  2. ELTROMBOPAG OLAMINE [Suspect]
     Active Substance: ELTROMBOPAG OLAMINE
     Dosage: 12.5 MG, DAILY
     Route: 048
  3. ELTROMBOPAG OLAMINE [Suspect]
     Active Substance: ELTROMBOPAG OLAMINE
     Route: 048
  4. ELTROMBOPAG OLAMINE [Suspect]
     Active Substance: ELTROMBOPAG OLAMINE
     Indication: Immune thrombocytopenia
     Route: 048
  5. ELTROMBOPAG OLAMINE [Suspect]
     Active Substance: ELTROMBOPAG OLAMINE
     Route: 048

REACTIONS (1)
  - Platelet count decreased [Recovered/Resolved]
